FAERS Safety Report 9280003 (Version 1)
Quarter: 2013Q2

REPORT INFORMATION
  Report Type: Spontaneous
  Country: US (occurrence: None)
  Receive Date: 20130506
  Receipt Date: 20130506
  Transmission Date: 20140414
  Serious: Yes (Hospitalization)
  Sender: FDA-Public Use
  Company Number: None

PATIENT
  Age: 72 Year
  Sex: Male

DRUGS (1)
  1. INVANZ [Suspect]
     Dosage: 1 GM  IV  DAILY
     Route: 042
     Dates: start: 20121218, end: 20121221

REACTIONS (1)
  - Convulsion [None]
